FAERS Safety Report 5455987-5 (Version None)
Quarter: 2007Q3

REPORT INFORMATION
  Report Type: 
  Country: None (occurrence: None)
  Receive Date: 20070918
  Receipt Date: 20070330
  Transmission Date: 20080115
  Serious: Yes (Other)
  Sender: FDA-Public Use
  Company Number: US-ASTRAZENECA-2006UW23843

PATIENT
  Age: 15004 Day
  Sex: Female
  Weight: 76.8 kg

DRUGS (4)
  1. SEROQUEL [Suspect]
     Indication: BIPOLAR DISORDER
     Route: 048
     Dates: end: 20050801
  2. RISPERDAL [Concomitant]
     Dates: start: 20060101
  3. ZYPREXA [Concomitant]
     Dates: start: 19980101, end: 19990101
  4. LITHIUM [Concomitant]

REACTIONS (1)
  - PANCREATITIS [None]
